FAERS Safety Report 8984256 (Version 2)
Quarter: 2013Q1

REPORT INFORMATION
  Report Type: Spontaneous
  Country: US (occurrence: US)
  Receive Date: 20121226
  Receipt Date: 20130130
  Transmission Date: 20140127
  Serious: No
  Sender: FDA-Public Use
  Company Number: US-ELI_LILLY_AND_COMPANY-US201212006660

PATIENT
  Sex: Female

DRUGS (1)
  1. HUMATROPE [Suspect]
     Indication: HYPOPITUITARISM
     Dosage: 1.0 DF, UNK
     Dates: start: 20110315

REACTIONS (1)
  - No adverse event [None]
